FAERS Safety Report 5610903-8 (Version None)
Quarter: 2008Q1

REPORT INFORMATION
  Report Type: 
  Country: None (occurrence: None)
  Receive Date: 20080201
  Receipt Date: 20080123
  Transmission Date: 20080703
  Serious: Yes (Other)
  Sender: FDA-Public Use
  Company Number: GB-BAYER-200810171BNE

PATIENT
  Age: 34 Year
  Sex: Female

DRUGS (1)
  1. CLOTRIMAZOLE [Suspect]
     Indication: VAGINAL CANDIDIASIS
     Dosage: TOTAL DAILY DOSE: 500 MG
     Route: 067
     Dates: start: 20071120

REACTIONS (6)
  - ABDOMINAL PAIN [None]
  - ABDOMINAL PAIN LOWER [None]
  - ABORTION THREATENED [None]
  - HEADACHE [None]
  - HYPERHIDROSIS [None]
  - VAGINAL HAEMORRHAGE [None]
